FAERS Safety Report 5644226-8 (Version None)
Quarter: 2008Q1

REPORT INFORMATION
  Report Type: 
  Country: None (occurrence: None)
  Receive Date: 20080227
  Receipt Date: 20080227
  Transmission Date: 20080703
  Serious: Yes (Other)
  Sender: FDA-Public Use
  Company Number: None

PATIENT
  Age: 49 Year
  Sex: Male
  Weight: 88.4514 kg

DRUGS (1)
  1. CHANTIX [Suspect]
     Indication: SMOKING CESSATION THERAPY
     Dosage: 1MG 2X DAILY PO
     Route: 048
     Dates: start: 20080108, end: 20080120

REACTIONS (4)
  - DEPRESSION [None]
  - DIZZINESS [None]
  - NIGHTMARE [None]
  - SUICIDAL IDEATION [None]
